FAERS Safety Report 8016932-1 (Version None)
Quarter: 2012Q1

REPORT INFORMATION
  Report Type: 
  Country: None (occurrence: None)
  Receive Date: 20120102
  Receipt Date: 20111222
  Transmission Date: 20120608
  Serious: Yes (Hospitalization, Other)
  Sender: FDA-Public Use
  Company Number: PHHY2011NL72172

PATIENT
  Sex: Male

DRUGS (6)
  1. ZOMETA [Suspect]
     Dosage: 4MG/5ML PER 28 DAYS
     Route: 042
     Dates: start: 20111129
  2. ZOMETA [Suspect]
     Dosage: 4MG/5ML PER 28 DAYS
     Route: 042
     Dates: start: 20110809
  3. ZOMETA [Suspect]
     Dosage: 4MG/5ML PER 28 DAYS
     Route: 042
     Dates: start: 20111101
  4. ZOMETA [Suspect]
     Indication: PROSTATE CANCER
     Dosage: 4MG/5ML PER 28 DAYS
     Route: 042
     Dates: start: 20110419
  5. ZOMETA [Suspect]
     Dosage: 4MG/5ML PER 28 DAYS
     Route: 042
     Dates: start: 20110713
  6. ZOMETA [Suspect]
     Dosage: 4MG/5ML PER 28 DAYS
     Route: 042
     Dates: start: 20111004

REACTIONS (7)
  - GENERAL PHYSICAL HEALTH DETERIORATION [None]
  - FLUID INTAKE REDUCED [None]
  - MALAISE [None]
  - DIARRHOEA [None]
  - ABDOMINAL DISCOMFORT [None]
  - DECREASED APPETITE [None]
  - HYPOPHAGIA [None]
